FAERS Safety Report 8758984 (Version 5)
Quarter: 2013Q2

REPORT INFORMATION
  Report Type: Spontaneous
  Country: GB (occurrence: GB)
  Receive Date: 20120829
  Receipt Date: 20130521
  Transmission Date: 20140414
  Serious: Yes (Other)
  Sender: FDA-Public Use
  Company Number: GB-MERCK-1208GBR009277

PATIENT
  Sex: Male
  Weight: 100 kg

DRUGS (1)
  1. ZISPIN SOLTAB [Suspect]
     Dosage: 15 MG, UNK
     Route: 048

REACTIONS (4)
  - Anger [Recovered/Resolved]
  - Hypersomnia [Recovering/Resolving]
  - Disturbance in attention [Recovered/Resolved]
  - Weight increased [Recovered/Resolved]
